FAERS Safety Report 6496308-9 (Version None)
Quarter: 2009Q4

REPORT INFORMATION
  Report Type: 
  Country: None (occurrence: None)
  Receive Date: 20091214
  Receipt Date: 20081209
  Transmission Date: 20100525
  Serious: No
  Sender: FDA-Public Use
  Company Number: US-ABBOTT-08P-163-0491802-00

PATIENT
  Sex: Male
  Weight: 88.53 kg

DRUGS (3)
  1. VICODIN ES [Suspect]
     Indication: PROCEDURAL PAIN
     Dosage: 1-2 TABS EVERY 4-6 HRS FOR ONE WEEK
     Dates: start: 20081011, end: 20081017
  2. NORCO [Concomitant]
     Indication: PAIN
     Dosage: 1 - 7.5/325MG TABLEY EVERY 6 HOURS
     Dates: start: 20081017, end: 20081021
  3. CEPHALEXIN [Concomitant]
     Indication: SURGERY
     Dates: start: 20081011, end: 20081017

REACTIONS (3)
  - BLOOD BILIRUBIN INCREASED [None]
  - FATIGUE [None]
  - NAUSEA [None]
